FAERS Safety Report 15877354 (Version 5)
Quarter: 2020Q3

REPORT INFORMATION
  Report Type: Spontaneous
  Country: US (occurrence: US)
  Receive Date: 20190128
  Receipt Date: 20200722
  Transmission Date: 20201102
  Serious: Yes (Other)
  Sender: FDA-Public Use
  Company Number: US-SA-2019SA020791

PATIENT

DRUGS (24)
  1. HYDROQUINONE. [Concomitant]
     Active Substance: HYDROQUINONE
  2. CYMBALTA [Concomitant]
     Active Substance: DULOXETINE HYDROCHLORIDE
     Dosage: UNK
  3. HYDROCODONE BITARTRATE;IBUPROFEN [Concomitant]
  4. CLOBETASOL 0.05% [Concomitant]
     Active Substance: CLOBETASOL
  5. DIAZEPAM. [Concomitant]
     Active Substance: DIAZEPAM
     Dosage: 5 MG
  6. PYRIDOXAL 5 PHOSPHATE [Concomitant]
     Active Substance: PYRIDOXAL PHOSPHATE ANHYDROUS
  7. IBUPROFEN. [Concomitant]
     Active Substance: IBUPROFEN
     Dosage: UNK
  8. VITAMIN B12 [Concomitant]
     Active Substance: CYANOCOBALAMIN
  9. AUBAGIO [Suspect]
     Active Substance: TERIFLUNOMIDE
     Indication: MULTIPLE SCLEROSIS
     Dosage: 14 MG, QD
     Route: 048
     Dates: start: 2016
  10. AMLODIPINE [Concomitant]
     Active Substance: AMLODIPINE BESYLATE
     Dosage: 5 MG
  11. ACEBUTOLOL [Concomitant]
     Active Substance: ACEBUTOLOL
     Dosage: UNK
  12. AMANTADINE. [Concomitant]
     Active Substance: AMANTADINE HYDROCHLORIDE
     Dosage: 100 MG
  13. MIRALAX [Concomitant]
     Active Substance: POLYETHYLENE GLYCOL 3350
  14. CYANOCOBALAMIN. [Concomitant]
     Active Substance: CYANOCOBALAMIN
  15. SENNA [SENNA ALEXANDRINA LEAF] [Concomitant]
  16. HYDROCODONE [Concomitant]
     Active Substance: HYDROCODONE
  17. VIVELLE?DOT [Concomitant]
     Active Substance: ESTRADIOL
  18. TOPAMAX [Concomitant]
     Active Substance: TOPIRAMATE
     Dosage: 200 MG
  19. ADDERALL [Concomitant]
     Active Substance: AMPHETAMINE ASPARTATE\AMPHETAMINE SULFATE\DEXTROAMPHETAMINE SACCHARATE\DEXTROAMPHETAMINE SULFATE
     Dosage: 30 MG
  20. SPIRONOLACTONE. [Concomitant]
     Active Substance: SPIRONOLACTONE
     Dosage: UNK
  21. AMLODIPINE BESYLATE. [Concomitant]
     Active Substance: AMLODIPINE BESYLATE
     Dosage: UNK
  22. BACLOFEN. [Concomitant]
     Active Substance: BACLOFEN
     Dosage: UNK
  23. IRON + VITAMIN C [Concomitant]
     Active Substance: ASCORBIC ACID\IRON
  24. CLONAZEPAM. [Concomitant]
     Active Substance: CLONAZEPAM
     Dosage: UNK

REACTIONS (13)
  - Fatigue [Unknown]
  - Dehydration [Unknown]
  - Malaise [Unknown]
  - Depression [Unknown]
  - Depressed mood [Unknown]
  - Renal impairment [Unknown]
  - Blood iron decreased [Unknown]
  - Rotator cuff repair [Unknown]
  - Diarrhoea [Unknown]
  - Drug ineffective [Unknown]
  - Nasopharyngitis [Unknown]
  - Cough [Unknown]
  - Alopecia [Unknown]

NARRATIVE: CASE EVENT DATE: 20191106
